FAERS Safety Report 5477800-2 (Version None)
Quarter: 2007Q4

REPORT INFORMATION
  Report Type: 
  Country: None (occurrence: None)
  Receive Date: 20071002
  Receipt Date: 20070917
  Transmission Date: 20080405
  Serious: Yes (Death, Hospitalization)
  Sender: FDA-Public Use
  Company Number: 2007001699

PATIENT
  Age: 70 Year
  Sex: Female

DRUGS (15)
  1. ERLOTINIB [Suspect]
     Indication: PANCREATIC CARCINOMA METASTATIC
     Dosage: (QD), ORAL
     Route: 048
     Dates: start: 20051130, end: 20060129
  2. BEVACIZUMAB [Suspect]
     Indication: PANCREATIC CARCINOMA METASTATIC
     Dosage: (Q2W), INTRAVENOUS
     Route: 042
     Dates: start: 20051130
  3. GEMCITABINE [Suspect]
     Indication: PANCREATIC CARCINOMA METASTATIC
     Dosage: 500MG/SQ.METER (QW),
     Route: 042
     Dates: start: 20051130
  4. CAPOTEN [Suspect]
     Dates: start: 20000615
  5. HYDROCODONE BITARTRATE [Suspect]
     Dates: start: 20050615
  6. OMEPRAZOLE [Concomitant]
  7. PANCREATIN TRIPLE STRENGTH CAP [Concomitant]
  8. LYSOMUCIL                 (ACETYLCYSTEINE) [Concomitant]
  9. LANTUS [Concomitant]
  10. NOVORAPID       (INSULIN ASPART) [Concomitant]
  11. ALPRAZOLAM [Concomitant]
  12. LOPERAMIDE [Concomitant]
  13. FUROSEMIDE [Concomitant]
  14. AMLODIPINE [Concomitant]
  15. TRAMADOL HCL [Concomitant]

REACTIONS (5)
  - DEEP VEIN THROMBOSIS [None]
  - HAEMOGLOBIN DECREASED [None]
  - INTERSTITIAL LUNG DISEASE [None]
  - RESPIRATORY FAILURE [None]
  - SOMNOLENCE [None]
